FAERS Safety Report 8849571 (Version 1)
Quarter: 2012Q4

REPORT INFORMATION
  Report Type: Spontaneous
  Country: US (occurrence: None)
  Receive Date: 20121018
  Receipt Date: 20121018
  Transmission Date: 20130627
  Serious: No
  Sender: FDA-Public Use
  Company Number: None

PATIENT
  Age: 40 Year
  Sex: Female
  Weight: 69.85 kg

DRUGS (3)
  1. SPRIX [Suspect]
     Indication: PROCEDURAL PAIN
     Dosage: 15.75 mg nasal spray , 1 spray every 6 hr, Nasal
     Route: 045
     Dates: start: 20121010, end: 20121015
  2. SPRIX [Suspect]
     Indication: MIGRAINE HEADACHE
     Dosage: 15.75 mg nasal spray , 1 spray every 6 hr, Nasal
     Route: 045
     Dates: start: 20121010, end: 20121015
  3. SPRIX [Suspect]
     Dosage: 15.75 mg nasal spray , 1 spray every 6 hr, Nasal
     Route: 045
     Dates: start: 20121010, end: 20121015

REACTIONS (2)
  - Abnormal dreams [None]
  - Sleep talking [None]
